FAERS Safety Report 6288138-8 (Version None)
Quarter: 2009Q3

REPORT INFORMATION
  Report Type: 
  Country: None (occurrence: None)
  Receive Date: 20090729
  Receipt Date: 20080930
  Transmission Date: 20100115
  Serious: No
  Sender: FDA-Public Use
  Company Number: A0750052A

PATIENT
  Age: 5 Month
  Sex: Male

DRUGS (2)
  1. ZANTAC [Suspect]
     Dosage: 1ML THREE TIMES PER DAY
     Route: 048
     Dates: start: 20080601
  2. NO CONCURRENT MEDICATION [Concomitant]

REACTIONS (2)
  - INSOMNIA [None]
  - PSYCHOMOTOR HYPERACTIVITY [None]
